FAERS Safety Report 5161346-5 (Version None)
Quarter: 2006Q4

REPORT INFORMATION
  Report Type: 
  Country: None (occurrence: None)
  Receive Date: 20061121
  Receipt Date: 20061108
  Transmission Date: 20070319
  Serious: Yes (Other)
  Sender: FDA-Public Use
  Company Number: 2006139327

PATIENT
  Age: 74 Year
  Sex: Female
  Weight: 80 kg

DRUGS (1)
  1. LINEZOLID [Suspect]
     Indication: WOUND INFECTION
     Dosage: (600 MG), ORAL
     Route: 048

REACTIONS (3)
  - DRY MOUTH [None]
  - DYSPHAGIA [None]
  - MOUTH ULCERATION [None]
